FAERS Safety Report 21838188 (Version 1)
Quarter: 2023Q1

REPORT INFORMATION
  Report Type: Spontaneous
  Country: EG (occurrence: None)
  Receive Date: 20230107
  Receipt Date: 20230107
  Transmission Date: 20230418
  Serious: Yes (Disabling, Other)
  Sender: FDA-Public Use
  Company Number: None

PATIENT
  Age: 18 Year
  Sex: Female

DRUGS (2)
  1. CIPRALEX [Suspect]
     Active Substance: ESCITALOPRAM OXALATE
     Indication: Irritable bowel syndrome
     Dosage: FREQUENCY : DAILY;?
     Route: 048
  2. BUSPAR [Suspect]
     Active Substance: BUSPIRONE HYDROCHLORIDE

REACTIONS (21)
  - Insomnia [None]
  - Agitation [None]
  - Nightmare [None]
  - Depersonalisation/derealisation disorder [None]
  - Hyperhidrosis [None]
  - Decreased activity [None]
  - Mania [None]
  - Psychomotor hyperactivity [None]
  - Aggression [None]
  - Emotional disorder [None]
  - Uterine haemorrhage [None]
  - Tension headache [None]
  - Feeling abnormal [None]
  - Disinhibition [None]
  - Swelling [None]
  - Memory impairment [None]
  - Decreased interest [None]
  - Suicidal ideation [None]
  - Akathisia [None]
  - Sexual dysfunction [None]
  - Product complaint [None]

NARRATIVE: CASE EVENT DATE: 20210615
